FAERS Safety Report 23028189 (Version 2)
Quarter: 2023Q4

REPORT INFORMATION
  Report Type: Spontaneous
  Country: GB (occurrence: GB)
  Receive Date: 20231004
  Receipt Date: 20231109
  Transmission Date: 20240110
  Serious: No
  Sender: FDA-Public Use
  Company Number: GB-UCBSA-2023045224

PATIENT
  Sex: Female

DRUGS (1)
  1. FINTEPLA [Suspect]
     Active Substance: FENFLURAMINE
     Indication: Severe myoclonic epilepsy of infancy
     Dosage: 7.7 MILLIGRAM, 2X/DAY (BID)
     Dates: start: 20230131

REACTIONS (4)
  - Product storage error [Unknown]
  - Circumstance or information capable of leading to medication error [Unknown]
  - Product availability issue [Unknown]
  - Social stay hospitalisation [Unknown]

NARRATIVE: CASE EVENT DATE: 20230101
